FAERS Safety Report 5089179-9 (Version None)
Quarter: 2006Q3

REPORT INFORMATION
  Report Type: 
  Country: None (occurrence: None)
  Receive Date: 20060822
  Receipt Date: 20060821
  Transmission Date: 20061208
  Serious: Yes (Other)
  Sender: FDA-Public Use
  Company Number: 2006AP000478

PATIENT
  Age: 54 Year
  Sex: Female

DRUGS (6)
  1. TERAZOSIN HCL [Suspect]
     Indication: HYPERTENSION
     Dosage: 1 MG; HS; PO
     Route: 048
     Dates: start: 20060623, end: 20060626
  2. NORVASC [Concomitant]
  3. GUANFACINE HCL [Concomitant]
  4. AVAPRO [Concomitant]
  5. INSULIN [Concomitant]
  6. SYNTHROID [Concomitant]

REACTIONS (6)
  - EYE HAEMORRHAGE [None]
  - READING DISORDER [None]
  - TREATMENT NONCOMPLIANCE [None]
  - VISION BLURRED [None]
  - VISUAL DISTURBANCE [None]
  - VITREOUS FLOATERS [None]
